FAERS Safety Report 5164119-2 (Version None)
Quarter: 2006Q4

REPORT INFORMATION
  Report Type: 
  Country: None (occurrence: None)
  Receive Date: 20061124
  Receipt Date: 20061107
  Transmission Date: 20070319
  Serious: Yes (Death, Hospitalization)
  Sender: FDA-Public Use
  Company Number: 163-C5013-06030255

PATIENT
  Age: 70 Year
  Sex: Male
  Weight: 67.586 kg

DRUGS (12)
  1. CC-5013                   (LENALIDOMIDE) [Suspect]
     Indication: MULTIPLE MYELOMA
     Dosage: 25 MG, QD FOR 21D, ORAL
     Route: 048
     Dates: start: 20051110, end: 20060227
  2. CC-5013                   (LENALIDOMIDE) [Suspect]
     Indication: MULTIPLE MYELOMA
     Dosage: 25 MG, QD FOR 21D, ORAL
     Route: 048
     Dates: start: 20060207, end: 20060227
  3. DEXAMETHASONE TAB [Suspect]
     Indication: MULTIPLE MYELOMA
     Dosage: ORAL
     Route: 048
     Dates: start: 20051110, end: 20060227
  4. OXYCONTIN [Concomitant]
  5. BACTRIM DS [Concomitant]
  6. ALLOPURINOL [Concomitant]
  7. PRINIVIL [Concomitant]
  8. FLUCONAZOLE [Concomitant]
  9. NEXIUM [Concomitant]
  10. CALCIUM D (CALCIUM) [Concomitant]
  11. ZOMETA [Concomitant]
  12. COUMADIN [Concomitant]

REACTIONS (9)
  - BLOOD CREATININE INCREASED [None]
  - CULTURE POSITIVE [None]
  - ERYTHEMA MULTIFORME [None]
  - HERPES SIMPLEX [None]
  - MALIGNANT NEOPLASM PROGRESSION [None]
  - MULTIPLE MYELOMA [None]
  - PSEUDOMONAS INFECTION [None]
  - STAPHYLOCOCCAL INFECTION [None]
  - TOXIC EPIDERMAL NECROLYSIS [None]
